FAERS Safety Report 11734943 (Version 1)
Quarter: 2015Q4

REPORT INFORMATION
  Report Type: Spontaneous
  Country: US (occurrence: US)
  Receive Date: 20151113
  Receipt Date: 20151113
  Transmission Date: 20160304
  Serious: Yes (Hospitalization)
  Sender: FDA-Public Use
  Company Number: US-SA-2015SA175150

PATIENT
  Age: 68 Year
  Sex: Female

DRUGS (1)
  1. MOZOBIL [Suspect]
     Active Substance: PLERIXAFOR
     Dosage: FREQUENCY: 2 DOSES
     Route: 058
     Dates: start: 20151027, end: 20151028

REACTIONS (4)
  - Confusional state [Unknown]
  - Visual impairment [Unknown]
  - Anxiety [Unknown]
  - Hallucination [Unknown]
